FAERS Safety Report 6101167-X (Version None)
Quarter: 2009Q1

REPORT INFORMATION
  Report Type: 
  Country: None (occurrence: None)
  Receive Date: 20090304
  Receipt Date: 20090228
  Transmission Date: 20090719
  Serious: Yes (Hospitalization, Other)
  Sender: FDA-Public Use
  Company Number: IT-BAYER-200912008GPV

PATIENT
  Age: 18 Year
  Sex: Female
  Weight: 45 kg

DRUGS (5)
  1. SORAFENIB [Suspect]
     Indication: BONE SARCOMA
     Dosage: TOTAL DAILY DOSE: 800 MG
     Route: 048
     Dates: start: 20081016, end: 20090103
  2. LAROXYL [Concomitant]
     Indication: PAIN
     Route: 048
     Dates: start: 20090126
  3. GABAPENTIN [Concomitant]
     Indication: PAIN
     Route: 048
     Dates: start: 20090126
  4. LANSOX [Concomitant]
     Indication: PROPHYLAXIS
     Route: 048
     Dates: start: 20090126
  5. MORPHINE [Concomitant]
     Indication: PAIN
     Route: 058
     Dates: start: 20090126

REACTIONS (1)
  - PNEUMOTHORAX [None]
